FAERS Safety Report 6192341-5 (Version None)
Quarter: 2009Q2

REPORT INFORMATION
  Report Type: 
  Country: None (occurrence: None)
  Receive Date: 20090518
  Receipt Date: 20090506
  Transmission Date: 20091009
  Serious: Yes (Other)
  Sender: FDA-Public Use
  Company Number: US-RANBAXY-2009RR-24080

PATIENT
  Age: 48 Year

DRUGS (11)
  1. TACROLIMUS [Suspect]
     Indication: IMMUNOSUPPRESSION
  2. MYCOPHENOLATE MOFETIL [Suspect]
     Indication: IMMUNOSUPPRESSION
     Dosage: UNK
  3. ANTI-THYMOCYTE GLOBULIN NOS [Suspect]
     Indication: IMMUNOSUPPRESSION
     Dosage: 1.5 MG/KG, UNK
  4. METHYLPREDNISOLONE [Suspect]
     Indication: IMMUNOSUPPRESSION
     Dosage: 500 MG, UNK
  5. METHYLPREDNISOLONE [Suspect]
     Dosage: 20 MG, UNK
  6. PREDNISOLONE RPG 5MG COMPRIME EFFERVESCENT [Suspect]
     Dosage: 5 MG, QD
  7. SIROLIMUS [Suspect]
     Indication: IMMUNOSUPPRESSION
  8. GANCICLOVIR [Suspect]
     Indication: PROPHYLAXIS
     Dosage: 3 G, QD
     Route: 048
  9. GANCICLOVIR [Suspect]
     Dosage: 10 MG/KG, UNK
     Route: 042
  10. PIPERACILLIN SODIUM AND TAZOBACTAM SODIUM [Concomitant]
     Indication: ANTIBIOTIC PROPHYLAXIS
  11. CO-TRIMOXAZOLE [Concomitant]
     Dosage: UNK

REACTIONS (1)
  - CYTOMEGALOVIRUS INFECTION [None]
